FAERS Safety Report 5208652-3 (Version None)
Quarter: 2007Q1

REPORT INFORMATION
  Report Type: 
  Country: None (occurrence: None)
  Receive Date: 20070116
  Receipt Date: 20070112
  Transmission Date: 20070707
  Serious: Yes (Life-Threatening, Hospitalization)
  Sender: FDA-Public Use
  Company Number: PHBS2007JP00890

PATIENT
  Age: 80 Year
  Sex: Male

DRUGS (2)
  1. LAMISIL [Suspect]
     Indication: NAIL TINEA
     Dosage: 125 MG/D
     Route: 048
  2. WARFARIN SODIUM [Suspect]
     Route: 048

REACTIONS (2)
  - DRUG INTERACTION [None]
  - HEPATITIS FULMINANT [None]
